FAERS Safety Report 19931628 (Version 4)
Quarter: 2021Q4

REPORT INFORMATION
  Report Type: Report from Study
  Country: US (occurrence: US)
  Receive Date: 20211008
  Receipt Date: 20211113
  Transmission Date: 20220303
  Serious: Yes (Hospitalization, Other)
  Sender: FDA-Public Use
  Company Number: NVSC2021US226689

PATIENT
  Age: 63 Year
  Sex: Male

DRUGS (3)
  1. ENTRESTO [Suspect]
     Active Substance: SACUBITRIL\VALSARTAN
     Indication: Cardiac failure
     Dosage: 1 DF (SACUBITRIL 97 MG, VALSARTAN 103 MG), BID
     Route: 048
     Dates: start: 2018
  2. SOTALOL [Suspect]
     Active Substance: SOTALOL
     Indication: Tachycardia
     Dosage: UNK
     Route: 065
     Dates: start: 202105
  3. PRAVASTATIN [Concomitant]
     Active Substance: PRAVASTATIN
     Indication: Hyperlipidaemia
     Dosage: 40 MG
     Route: 065

REACTIONS (9)
  - Tachycardia [Not Recovered/Not Resolved]
  - Fall [Unknown]
  - Fear of death [Not Recovered/Not Resolved]
  - Decreased activity [Not Recovered/Not Resolved]
  - Back pain [Recovering/Resolving]
  - Blood pressure fluctuation [Unknown]
  - Low density lipoprotein increased [Unknown]
  - Dizziness [Recovering/Resolving]
  - Therapeutic product effect incomplete [Recovering/Resolving]

NARRATIVE: CASE EVENT DATE: 20210501
